FAERS Safety Report 14944195 (Version 4)
Quarter: 2019Q1

REPORT INFORMATION
  Report Type: Spontaneous
  Country: DE (occurrence: DE)
  Receive Date: 20180528
  Receipt Date: 20190222
  Transmission Date: 20190417
  Serious: Yes (Life-Threatening, Hospitalization, Other)
  Sender: FDA-Public Use
  Company Number: PHHY2009DE075271

PATIENT
  Age: 49 Year
  Sex: Female
  Weight: 60 kg

DRUGS (13)
  1. AMITRIPTYLINE HYDROCHLORIDE. [Suspect]
     Active Substance: AMITRIPTYLINE HYDROCHLORIDE
     Indication: BACK PAIN
     Dosage: 10 MG, QD
     Route: 048
     Dates: end: 20090217
  2. KATADOLON S [Suspect]
     Active Substance: FLUPIRTINE
     Dosage: 1 DF, QD
     Route: 048
  3. ARCOXIA [Suspect]
     Active Substance: ETORICOXIB
     Indication: BACK PAIN
     Dosage: 60 MILLIGRAM, QD (60 MG, QD (ALSO REPORTED AS120 MILLIGRAM DAILY)
     Route: 048
  4. KATADOLON S [Suspect]
     Active Substance: FLUPIRTINE
     Indication: BACK PAIN
     Dosage: 400 MG, QD
     Route: 048
     Dates: start: 200809, end: 20090217
  5. ARCOXIA [Suspect]
     Active Substance: ETORICOXIB
     Dosage: 120 MG, 1X/DAY
     Route: 048
     Dates: start: 20060222, end: 20060307
  6. FEMIGOA [Concomitant]
     Active Substance: ETHINYL ESTRADIOL\LEVONORGESTREL
     Indication: CONTRACEPTION
     Dosage: DOSAGE FORM: UNSPECIFIED
     Route: 048
  7. KATADOLON S [Suspect]
     Active Substance: FLUPIRTINE
     Indication: SPINAL PAIN
     Dosage: 100 MG, TID
     Route: 048
     Dates: start: 20060131, end: 20060307
  8. FEMIGOA [Concomitant]
     Active Substance: ETHINYL ESTRADIOL\LEVONORGESTREL
     Dosage: UNK
  9. IBUPROFEN. [Suspect]
     Active Substance: IBUPROFEN
     Indication: BACK PAIN
     Dosage: 1200 MG, QD
     Route: 048
  10. ARCOXIA [Suspect]
     Active Substance: ETORICOXIB
     Dosage: 120 MILLIGRAM, BID
     Route: 048
     Dates: start: 20060222, end: 20060307
  11. IBUPROFEN. [Suspect]
     Active Substance: IBUPROFEN
     Dosage: 400 MG, TID
     Route: 048
  12. MYDOCALM (TOLPERISONE HYDROCHLORIDE) [Suspect]
     Active Substance: TOLPERISONE HYDROCHLORIDE
     Indication: SPINAL PAIN
     Dosage: 50 MG, TID
     Route: 048
     Dates: end: 20060307
  13. MYDOCALM (TOLPERISONE HYDROCHLORIDE) [Suspect]
     Active Substance: TOLPERISONE HYDROCHLORIDE
     Dosage: 50 MG, 3X/DAY
     Route: 048
     Dates: start: 20060222, end: 20060307

REACTIONS (10)
  - Hepatic encephalopathy [Recovered/Resolved]
  - Hepatitis acute [Recovered/Resolved]
  - Hepatitis [Recovering/Resolving]
  - Aspartate aminotransferase increased [Recovering/Resolving]
  - Acute hepatic failure [Recovered/Resolved]
  - Hepatic function abnormal [Recovering/Resolving]
  - Drug-induced liver injury [Recovered/Resolved]
  - Gamma-glutamyltransferase increased [Recovering/Resolving]
  - Alanine aminotransferase increased [Recovering/Resolving]
  - Jaundice [Recovering/Resolving]

NARRATIVE: CASE EVENT DATE: 20060308
